FAERS Safety Report 13961435 (Version 1)
Quarter: 2017Q3

REPORT INFORMATION
  Report Type: Spontaneous
  Country: GB (occurrence: GB)
  Receive Date: 20170912
  Receipt Date: 20170912
  Transmission Date: 20171128
  Serious: Yes (Other)
  Sender: FDA-Public Use
  Company Number: GB-TEVA-803865ACC

PATIENT
  Sex: Female

DRUGS (1)
  1. PROPRANOLOL [Suspect]
     Active Substance: PROPRANOLOL HYDROCHLORIDE
     Route: 065

REACTIONS (6)
  - Chest pain [Unknown]
  - Vomiting [Unknown]
  - Loss of consciousness [Unknown]
  - Chest discomfort [Unknown]
  - Hypoaesthesia [Unknown]
  - Headache [Unknown]
